FAERS Safety Report 11635070 (Version 1)
Quarter: 2015Q4

REPORT INFORMATION
  Report Type: Spontaneous
  Country: US (occurrence: US)
  Receive Date: 20151015
  Receipt Date: 20151015
  Transmission Date: 20160304
  Serious: No
  Sender: FDA-Public Use
  Company Number: US-SA-2015SA145232

PATIENT
  Age: 5 Year
  Sex: Male
  Weight: 17.69 kg

DRUGS (10)
  1. LUMIZYME [Suspect]
     Active Substance: ALGLUCOSIDASE ALFA
     Indication: GLYCOGEN STORAGE DISORDER
     Route: 041
     Dates: start: 20150317
  2. LUMIZYME [Suspect]
     Active Substance: ALGLUCOSIDASE ALFA
     Indication: GLYCOGEN STORAGE DISORDER
     Route: 041
  3. TOBRAMYCIN. [Concomitant]
     Active Substance: TOBRAMYCIN
     Dosage: AS DIRECTED
     Dates: start: 20150504
  4. VITAMIN C [Concomitant]
     Active Substance: ASCORBIC ACID
     Dosage: AS DIRECTED
     Route: 048
     Dates: start: 20150330
  5. LUMIZYME [Suspect]
     Active Substance: ALGLUCOSIDASE ALFA
     Indication: GLYCOGEN STORAGE DISORDER
     Route: 041
     Dates: start: 20150317
  6. LUMIZYME [Suspect]
     Active Substance: ALGLUCOSIDASE ALFA
     Indication: GLYCOGEN STORAGE DISORDER
     Route: 041
  7. IRON [Concomitant]
     Active Substance: IRON
     Dosage: AS DIRECTED
     Route: 048
     Dates: start: 20150330
  8. PULMICORT FLEXHALER [Concomitant]
     Active Substance: BUDESONIDE
     Dosage: AS DIRECTED
     Route: 055
     Dates: start: 20150330
  9. XOPENEX [Concomitant]
     Active Substance: LEVALBUTEROL HYDROCHLORIDE
     Dosage: NEBULIZE AS DIRECTED
     Dates: start: 20150330
  10. TOBRAMYCIN. [Concomitant]
     Active Substance: TOBRAMYCIN
     Dosage: AS DIRECTED
     Route: 055
     Dates: start: 20150330

REACTIONS (4)
  - Pyrexia [Unknown]
  - Upper respiratory tract infection [Unknown]
  - Oropharyngeal pain [Unknown]
  - Cough [Unknown]
